FAERS Safety Report 19808188 (Version 1)
Quarter: 2021Q3

REPORT INFORMATION
  Report Type: Spontaneous
  Country: US (occurrence: US)
  Receive Date: 20210908
  Receipt Date: 20210908
  Transmission Date: 20211014
  Serious: Yes (Life-Threatening, Hospitalization, Disabling, Congenital Anomaly)
  Sender: FDA-Public Use
  Company Number: None

PATIENT
  Age: 28 Year
  Sex: Female
  Weight: 56.25 kg

DRUGS (3)
  1. ZOLOFT [Concomitant]
     Active Substance: SERTRALINE HYDROCHLORIDE
  2. TAKE ACTION [Suspect]
     Active Substance: LEVONORGESTREL
     Indication: POST COITAL CONTRACEPTION
     Dosage: ?          QUANTITY:1 TABLET(S);OTHER FREQUENCY:SINGLE USE;?
     Route: 048
     Dates: start: 20210722, end: 20210722
  3. DOXYCYCLINE. [Concomitant]
     Active Substance: DOXYCYCLINE

REACTIONS (4)
  - Abdominal pain [None]
  - Ectopic pregnancy [None]
  - Exposure during pregnancy [None]
  - Internal haemorrhage [None]

NARRATIVE: CASE EVENT DATE: 20210816
